FAERS Safety Report 24240636 (Version 2)
Quarter: 2024Q3

REPORT INFORMATION
  Report Type: Spontaneous
  Country: AU (occurrence: AU)
  Receive Date: 20240823
  Receipt Date: 20240828
  Transmission Date: 20241017
  Serious: Yes (Other)
  Sender: BIOGEN
  Company Number: AU-BIOGEN-2024BI01279087

PATIENT
  Age: 34 Year
  Sex: Female

DRUGS (3)
  1. TYSABRI [Suspect]
     Active Substance: NATALIZUMAB
     Indication: Multiple sclerosis
     Route: 050
     Dates: start: 201603, end: 2021
  2. IVMP [Concomitant]
     Indication: Product used for unknown indication
     Route: 050
  3. KEPPRA [Concomitant]
     Active Substance: LEVETIRACETAM
     Indication: Product used for unknown indication
     Route: 050

REACTIONS (6)
  - Herpes simplex encephalitis [Unknown]
  - Generalised tonic-clonic seizure [Unknown]
  - Maternal exposure during pregnancy [Recovered/Resolved]
  - Cerebral disorder [Unknown]
  - Demyelination [Unknown]
  - Multiple sclerosis relapse [Unknown]

NARRATIVE: CASE EVENT DATE: 20210101
